FAERS Safety Report 17759892 (Version 1)
Quarter: 2020Q2

REPORT INFORMATION
  Report Type: Spontaneous
  Country: US (occurrence: US)
  Receive Date: 20200507
  Receipt Date: 20200507
  Transmission Date: 20200714
  Serious: Yes (Death)
  Sender: FDA-Public Use
  Company Number: None

PATIENT
  Age: 70 Year
  Sex: Female

DRUGS (15)
  1. ATIVAN [Concomitant]
     Active Substance: LORAZEPAM
  2. LIDOCAINE. [Concomitant]
     Active Substance: LIDOCAINE
  3. AMITIZA [Concomitant]
     Active Substance: LUBIPROSTONE
  4. LISINOPRIL. [Concomitant]
     Active Substance: LISINOPRIL
  5. GLIPIZIDE. [Concomitant]
     Active Substance: GLIPIZIDE
  6. IBRANCE [Suspect]
     Active Substance: PALBOCICLIB
     Indication: BREAST CANCER
     Dosage: ?          OTHER FREQUENCY:QD 21 DAYS/ 7 OFF;?
     Route: 048
     Dates: start: 20191106
  7. COMPAZINE [Concomitant]
     Active Substance: PROCHLORPERAZINE MALEATE
  8. OXYCONTIN [Concomitant]
     Active Substance: OXYCODONE HYDROCHLORIDE
  9. SCOPOLAMINE [Concomitant]
     Active Substance: SCOPOLAMINE
  10. MEGESTROL [Concomitant]
     Active Substance: MEGESTROL
  11. SANCUSO [Concomitant]
     Active Substance: GRANISETRON
  12. LANTUS [Concomitant]
     Active Substance: INSULIN GLARGINE
  13. OXYCODONE [Concomitant]
     Active Substance: OXYCODONE
  14. ZOFRAN [Concomitant]
     Active Substance: ONDANSETRON HYDROCHLORIDE
  15. TRULICITY [Concomitant]
     Active Substance: DULAGLUTIDE

REACTIONS (1)
  - Death [None]
